FAERS Safety Report 13841301 (Version 4)
Quarter: 2017Q3

REPORT INFORMATION
  Report Type: Report from Study
  Country: FR (occurrence: FR)
  Receive Date: 20170807
  Receipt Date: 20170824
  Transmission Date: 20171127
  Serious: Yes (Death, Other)
  Sender: FDA-Public Use
  Company Number: FR-BRISTOL-MYERS SQUIBB COMPANY-BMS-2017-070544

PATIENT
  Age: 79 Year
  Sex: Female

DRUGS (1)
  1. NIVOLUMAB [Suspect]
     Active Substance: NIVOLUMAB
     Indication: LUNG NEOPLASM MALIGNANT
     Dosage: 180 MG, Q2WK
     Route: 042
     Dates: start: 20170630, end: 20170713

REACTIONS (4)
  - Pleural effusion [Unknown]
  - Malignant neoplasm progression [Fatal]
  - General physical health deterioration [Unknown]
  - Lymphangitis [Unknown]

NARRATIVE: CASE EVENT DATE: 20170725
